FAERS Safety Report 5447450-2 (Version None)
Quarter: 2007Q3

REPORT INFORMATION
  Report Type: 
  Country: None (occurrence: None)
  Receive Date: 20070905
  Receipt Date: 20070820
  Transmission Date: 20080115
  Serious: No
  Sender: FDA-Public Use
  Company Number: 8026328

PATIENT
  Age: 13 Year
  Sex: Male
  Weight: 27.7 kg

DRUGS (1)
  1. EQUASYM XL [Suspect]
     Indication: ATTENTION DEFICIT/HYPERACTIVITY DISORDER
     Dosage: 30 MG 1/D PO
     Route: 048
     Dates: start: 20070508, end: 20070531

REACTIONS (1)
  - TIC [None]
